FAERS Safety Report 5491191-2 (Version None)
Quarter: 2007Q4

REPORT INFORMATION
  Report Type: 
  Country: None (occurrence: None)
  Receive Date: 20071019
  Receipt Date: 20071010
  Transmission Date: 20080405
  Serious: Yes (Other)
  Sender: FDA-Public Use
  Company Number: US-PFIZER INC-2007085722

PATIENT
  Sex: Female
  Weight: 86.363 kg

DRUGS (4)
  1. LIPITOR [Suspect]
     Indication: BLOOD CHOLESTEROL
  2. LIPITOR [Interacting]
     Indication: BLOOD TRIGLYCERIDES INCREASED
  3. AZITHROMYCIN [Interacting]
     Indication: SINUSITIS
  4. NASONEX [Concomitant]

REACTIONS (2)
  - DRUG INTERACTION [None]
  - MUSCULAR WEAKNESS [None]
